FAERS Safety Report 6027523-6 (Version None)
Quarter: 2009Q1

REPORT INFORMATION
  Report Type: 
  Country: None (occurrence: None)
  Receive Date: 20090105
  Receipt Date: 20081224
  Transmission Date: 20090719
  Serious: Yes (Death)
  Sender: FDA-Public Use
  Company Number: JP-GENENTECH-273670

PATIENT
  Age: 63 Year
  Sex: Male

DRUGS (3)
  1. ACTIVASE [Suspect]
     Indication: CEREBRAL ARTERY EMBOLISM
     Dosage: 51 MG, UNK
     Route: 042
     Dates: start: 20080811, end: 20080811
  2. RADICUT [Concomitant]
     Indication: DRUG USE FOR UNKNOWN INDICATION
     Dosage: 60 MG, QD
     Route: 041
     Dates: start: 20080811, end: 20080812
  3. GASTER [Concomitant]
     Indication: DRUG USE FOR UNKNOWN INDICATION
     Dosage: 40 MG, QD
     Route: 042
     Dates: start: 20080811, end: 20080811

REACTIONS (1)
  - MYOCARDIAL RUPTURE [None]
